FAERS Safety Report 9138159 (Version 1)
Quarter: 2013Q1

REPORT INFORMATION
  Report Type: Spontaneous
  Country: US (occurrence: US)
  Receive Date: 20130304
  Receipt Date: 20130304
  Transmission Date: 20140127
  Serious: Yes (Other)
  Sender: FDA-Public Use
  Company Number: US-PFIZER INC-2013072467

PATIENT
  Age: 69 Year
  Sex: Female
  Weight: 65.31 kg

DRUGS (7)
  1. NEURONTIN [Suspect]
     Indication: NARCOLEPSY
     Dosage: 300 MG, 1X/DAY
     Route: 048
     Dates: start: 201209, end: 20130220
  2. PROVIGIL [Suspect]
     Indication: NARCOLEPSY
     Dosage: UNK DF, UNK
  3. ADVAIR DISKUS [Concomitant]
     Indication: ASTHMA
     Dosage: [FLUTICASONE 500MG]/ [SALMETEROL 50MG], 2X/DAY
  4. VENTOLIN HFA [Concomitant]
     Indication: ASTHMA
     Dosage: 9 MG, AS NEEDED
  5. BENTYL [Concomitant]
     Indication: COLITIS
     Dosage: 10 MG, EVERY 6HOURS
  6. BENTYL [Concomitant]
     Indication: IRRITABLE BOWEL SYNDROME
  7. BENICAR HCT [Concomitant]
     Indication: HYPERTENSION
     Dosage: [OLMESARTAN20MG]/ [HYDROCHLORTHAIZIDE 12.5MG], UNK

REACTIONS (14)
  - Gait disturbance [Recovered/Resolved]
  - Dysstasia [Recovered/Resolved]
  - Blood sodium decreased [Unknown]
  - Vision blurred [Recovered/Resolved]
  - Depression [Recovered/Resolved]
  - Heart rate increased [Recovered/Resolved]
  - Pruritus generalised [Recovering/Resolving]
  - Abnormal dreams [Recovered/Resolved]
  - Insomnia [Recovered/Resolved]
  - Nervousness [Recovered/Resolved]
  - Malaise [Recovered/Resolved]
  - Decreased appetite [Recovered/Resolved]
  - Crying [Recovered/Resolved]
  - Off label use [Recovered/Resolved]
